FAERS Safety Report 17552335 (Version 3)
Quarter: 2020Q3

REPORT INFORMATION
  Report Type: Spontaneous
  Country: BE (occurrence: BE)
  Receive Date: 20200317
  Receipt Date: 20200710
  Transmission Date: 20201102
  Serious: Yes (Hospitalization)
  Sender: FDA-Public Use
  Company Number: BE-PFIZER INC-2020079617

PATIENT
  Age: 15 Year
  Sex: Male
  Weight: 78 kg

DRUGS (5)
  1. SUSTANON [TESTOSTERONE ISOCAPROATE;TESTOSTERONE PHENYLPROPIONATE;TESTO [Concomitant]
     Active Substance: TESTOSTERONE
     Dosage: 250 MG/ML, EVERY TWO WEEKS
  2. HYDROCORTISONE [HYDROCORTISONE ACETATE] [Concomitant]
     Active Substance: HYDROCORTISONE ACETATE
     Dosage: UNK
  3. PASIREOTIDE. [Concomitant]
     Active Substance: PASIREOTIDE
     Indication: GROWTH HORMONE-PRODUCING PITUITARY TUMOUR
     Dosage: 40 MG, CYCLIC (EVERY 2 WEEKS)
     Route: 030
     Dates: start: 20190906
  4. SOMAVERT [Suspect]
     Active Substance: PEGVISOMANT
     Dosage: 15 MG, 1X/DAY
     Route: 058
     Dates: start: 20190501, end: 20200311
  5. L?THYROXINE [LEVOTHYROXINE] [Concomitant]
     Active Substance: LEVOTHYROXINE
     Dosage: 50 UG, 1X/DAY

REACTIONS (2)
  - Pituitary tumour benign [Not Recovered/Not Resolved]
  - Condition aggravated [Not Recovered/Not Resolved]

NARRATIVE: CASE EVENT DATE: 20200220
